FAERS Safety Report 6793360-8 (Version None)
Quarter: 2010Q2

REPORT INFORMATION
  Report Type: 
  Country: None (occurrence: None)
  Receive Date: 20100624
  Receipt Date: 20100621
  Transmission Date: 20101027
  Serious: Yes (Other)
  Sender: FDA-Public Use
  Company Number: US-MYLANLABS-2009S1022065

PATIENT
  Age: 31 Year
  Sex: Male

DRUGS (10)
  1. CLOZAPINE [Suspect]
     Indication: SCHIZOPHRENIA
     Route: 048
     Dates: end: 20091223
  2. CLOZAPINE [Suspect]
     Route: 048
     Dates: end: 20091223
  3. CLOZAPINE [Suspect]
     Route: 048
     Dates: end: 20091223
  4. HALDOL [Concomitant]
     Indication: SCHIZOPHRENIA
  5. HALDOL [Concomitant]
  6. COGENTIN [Concomitant]
  7. KEPPRA [Concomitant]
  8. INDERAL LA [Concomitant]
  9. ZANTAC [Concomitant]
  10. ATIVAN [Concomitant]

REACTIONS (2)
  - GRANULOCYTOPENIA [None]
  - LEUKOPENIA [None]
